FAERS Safety Report 19683191 (Version 2)
Quarter: 2024Q1

REPORT INFORMATION
  Report Type: Spontaneous
  Country: US (occurrence: US)
  Receive Date: 20210810
  Receipt Date: 20240229
  Transmission Date: 20240410
  Serious: No
  Sender: FDA-Public Use
  Company Number: US-HORIZON THERAPEUTICS-HZN-2021-003346

PATIENT

DRUGS (2)
  1. TEPEZZA [Suspect]
     Active Substance: TEPROTUMUMAB-TRBW
     Indication: Product used for unknown indication
     Dosage: FIRST DOSE OF FIRST COURSE OF TREATMENT
     Route: 065
     Dates: start: 20201210
  2. TEPEZZA [Suspect]
     Active Substance: TEPROTUMUMAB-TRBW
     Dosage: TREATMENT 5 OF FIRST COURSE OF TREATMENT
     Route: 065

REACTIONS (2)
  - Diplopia [Not Recovered/Not Resolved]
  - Muscle spasms [Unknown]
